FAERS Safety Report 7149001-3 (Version None)
Quarter: 2010Q4

REPORT INFORMATION
  Report Type: 
  Country: None (occurrence: None)
  Receive Date: 20101209
  Receipt Date: 20101126
  Transmission Date: 20110411
  Serious: Yes (Hospitalization)
  Sender: FDA-Public Use
  Company Number: US-ELI_LILLY_AND_COMPANY-US201011007229

PATIENT
  Sex: Male

DRUGS (6)
  1. GEMCITABINE HCL [Suspect]
     Indication: PANCREATIC CARCINOMA
     Dosage: 1000 MG/M2 (1780MG), UNK
     Dates: start: 20100928
  2. LOVENOX [Concomitant]
     Indication: THROMBOSIS
     Dates: start: 20100928
  3. LANTUS [Concomitant]
     Indication: DIABETES MELLITUS
     Dates: start: 20100928
  4. OXYCODONE HCL [Concomitant]
     Indication: PAIN
     Dates: start: 20100921
  5. POLYETHYLENE GLYCOL [Concomitant]
     Indication: CONSTIPATION
     Dates: start: 20100920
  6. PROCHLORPERAZINE MALEATE [Concomitant]
     Indication: PROPHYLAXIS
     Dates: start: 20100928

REACTIONS (1)
  - SMALL INTESTINAL HAEMORRHAGE [None]
